FAERS Safety Report 25729736 (Version 1)
Quarter: 2025Q3

REPORT INFORMATION
  Report Type: Spontaneous
  Country: US (occurrence: None)
  Receive Date: 20250826
  Receipt Date: 20250826
  Transmission Date: 20251020
  Serious: Yes (Hospitalization)
  Sender: FDA-CTU
  Company Number: None

PATIENT
  Age: 65 Year
  Sex: Female

DRUGS (10)
  1. REPATHA [Suspect]
     Active Substance: EVOLOCUMAB
     Indication: Arteriosclerosis
     Dosage: 140 MG/ML EVERY 2 WEEKS SUBCUTANEOUS?
     Route: 058
     Dates: start: 20200810
  2. OYSTER SHELL CALCIUM/MAGN [Concomitant]
  3. ENTRESTO [Concomitant]
     Active Substance: SACUBITRIL\VALSARTAN
  4. JARDIANCE [Concomitant]
     Active Substance: EMPAGLIFLOZIN
  5. NOVOLOG [Concomitant]
     Active Substance: INSULIN ASPART
  6. TORSEMIDE [Concomitant]
     Active Substance: TORSEMIDE
  7. ISOSORBIDE MONONITRATE [Concomitant]
     Active Substance: ISOSORBIDE MONONITRATE
  8. CARVEDILOL [Concomitant]
     Active Substance: CARVEDILOL
  9. OMEPRAZOLE [Concomitant]
     Active Substance: OMEPRAZOLE
  10. VITAMIN D2 [Concomitant]
     Active Substance: ERGOCALCIFEROL

REACTIONS (2)
  - Transient ischaemic attack [None]
  - Atrial fibrillation [None]

NARRATIVE: CASE EVENT DATE: 20250825
